FAERS Safety Report 10933394 (Version 2)
Quarter: 2015Q1

REPORT INFORMATION
  Report Type: Report from Study
  Country: US (occurrence: US)
  Receive Date: 20150320
  Receipt Date: 20150323
  Transmission Date: 20150721
  Serious: No
  Sender: FDA-Public Use
  Company Number: US-ABBVIE-15P-163-1356046-00

PATIENT
  Age: 52 Year
  Sex: Female

DRUGS (1)
  1. VIEKIRA PAK [Suspect]
     Active Substance: DASABUVIR\OMBITASVIR\PARITAPREVIR\RITONAVIR
     Indication: HEPATITIS C
     Dosage: 2 PINK TABS IN THE AM, 1 BEIGE TWICE DAILY, AM AND PM, WITH FOOD
     Route: 048
     Dates: start: 20150207

REACTIONS (3)
  - Diarrhoea [Unknown]
  - Nightmare [Unknown]
  - Nausea [Unknown]

NARRATIVE: CASE EVENT DATE: 201502
